FAERS Safety Report 8105655-6 (Version None)
Quarter: 2012Q1

REPORT INFORMATION
  Report Type: 
  Country: None (occurrence: None)
  Receive Date: 20120201
  Receipt Date: 20120123
  Transmission Date: 20120608
  Serious: Yes (Hospitalization)
  Sender: FDA-Public Use
  Company Number: CHPA2012US001849

PATIENT
  Age: 56 Year
  Sex: Female

DRUGS (1)
  1. EXCEDRIN EXTRA STRENGTH TABLETS [Suspect]
     Indication: HEADACHE
     Dosage: 1-2 DF, QD
     Route: 048
     Dates: start: 20100412

REACTIONS (14)
  - VISUAL ACUITY REDUCED [None]
  - SWOLLEN TONGUE [None]
  - ABDOMINAL PAIN [None]
  - VOMITING [None]
  - ANAPHYLACTIC SHOCK [None]
  - PARAESTHESIA [None]
  - FEELING ABNORMAL [None]
  - DIARRHOEA [None]
  - BLOOD PRESSURE DECREASED [None]
  - HEART RATE INCREASED [None]
  - WHEEZING [None]
  - INCORRECT DRUG ADMINISTRATION DURATION [None]
  - UNDERDOSE [None]
  - HYPOAESTHESIA [None]
